FAERS Safety Report 11733989 (Version 1)
Quarter: 2015Q4

REPORT INFORMATION
  Report Type: Spontaneous
  Country: US (occurrence: US)
  Receive Date: 20151110
  Receipt Date: 20151110
  Transmission Date: 20160304
  Serious: No
  Sender: FDA-Public Use
  Company Number: US-ELI_LILLY_AND_COMPANY-US201202000131

PATIENT
  Sex: Female

DRUGS (2)
  1. FORTEO [Suspect]
     Active Substance: TERIPARATIDE
     Indication: OSTEOPOROSIS
     Dosage: 20 UG, QD
     Dates: start: 20120121
  2. FORTEO [Suspect]
     Active Substance: TERIPARATIDE
     Dosage: 20 UG, QD

REACTIONS (15)
  - Hypoacusis [Unknown]
  - Scab [Not Recovered/Not Resolved]
  - Fall [Unknown]
  - Contusion [Unknown]
  - Mass [Unknown]
  - Skin injury [Unknown]
  - Sleep disorder due to general medical condition, insomnia type [Unknown]
  - Visual impairment [Not Recovered/Not Resolved]
  - Injection site bruising [Unknown]
  - Injection site pain [Unknown]
  - Memory impairment [Not Recovered/Not Resolved]
  - Balance disorder [Unknown]
  - Back pain [Unknown]
  - Muscle spasms [Unknown]
  - Middle insomnia [Unknown]
